FAERS Safety Report 8975833 (Version 1)
Quarter: 2012Q4

REPORT INFORMATION
  Report Type: Report from Study
  Country: DE (occurrence: DE)
  Receive Date: 20121219
  Receipt Date: 20121219
  Transmission Date: 20130627
  Serious: Yes (Death, Hospitalization)
  Sender: FDA-Public Use
  Company Number: DE-ACTELION-A-US2012-68197

PATIENT
  Age: 81 Year
  Sex: Male

DRUGS (4)
  1. VENTAVIS [Suspect]
     Indication: PULMONARY ARTERIAL HYPERTENSION
     Dosage: 5 ?g, q4hrs
     Route: 055
     Dates: start: 20121108
  2. VENTAVIS [Suspect]
     Dosage: 5 ug, UNK
     Route: 055
     Dates: start: 20111122, end: 20120701
  3. VENTAVIS [Suspect]
     Dosage: 2.5 ug, qid
     Route: 055
     Dates: start: 20111108
  4. VENTAVIS [Suspect]
     Dosage: 2.5 ug, qid
     Route: 055

REACTIONS (5)
  - Disease progression [Fatal]
  - Oedema peripheral [Recovering/Resolving]
  - Throat irritation [Recovered/Resolved]
  - Asthenia [Not Recovered/Not Resolved]
  - Asthenia [Not Recovered/Not Resolved]
